FAERS Safety Report 20034200 (Version 3)
Quarter: 2021Q4

REPORT INFORMATION
  Report Type: Spontaneous
  Country: PT (occurrence: PT)
  Receive Date: 20211104
  Receipt Date: 20211124
  Transmission Date: 20220303
  Serious: Yes (Other)
  Sender: FDA-Public Use
  Company Number: PT-ORGANON-O2110PRT001469

PATIENT
  Age: 31 Year
  Sex: Female
  Weight: 52 kg

DRUGS (1)
  1. ETONOGESTREL [Suspect]
     Active Substance: ETONOGESTREL
     Dosage: 1 DOSAGE FORM,1 IMPLANT
     Route: 059
     Dates: start: 201708

REACTIONS (5)
  - Ectopic pregnancy with contraceptive device [Recovered/Resolved]
  - Haemoperitoneum [Recovered/Resolved]
  - Ruptured ectopic pregnancy [Recovered/Resolved]
  - Unintended pregnancy [Recovered/Resolved]
  - Incorrect product administration duration [Unknown]

NARRATIVE: CASE EVENT DATE: 20201001
